FAERS Safety Report 20634114 (Version 1)
Quarter: 2022Q1

REPORT INFORMATION
  Report Type: Report from Study
  Country: CA (occurrence: CA)
  Receive Date: 20220324
  Receipt Date: 20220324
  Transmission Date: 20220423
  Serious: Yes (Hospitalization, Other)
  Sender: FDA-Public Use
  Company Number: CA-ABBVIE-22K-028-4283239-00

PATIENT
  Sex: Female

DRUGS (20)
  1. CARBIDOPA\LEVODOPA [Suspect]
     Active Substance: CARBIDOPA\LEVODOPA
     Indication: Parkinson^s disease
     Dosage: DUODOPA, LEVODOPA 20MG/ML,CARBIDOPAMONOHYDRATE 5MG/ML
     Route: 050
     Dates: start: 20170906
  2. CARBIDOPA\LEVODOPA [Suspect]
     Active Substance: CARBIDOPA\LEVODOPA
  3. ACETAMINOPHEN [Concomitant]
     Active Substance: ACETAMINOPHEN
     Indication: Pain
     Route: 048
  4. ACETAMINOPHEN [Concomitant]
     Active Substance: ACETAMINOPHEN
     Route: 048
  5. DULCOLAX NOS [Concomitant]
     Active Substance: BISACODYL OR DOCUSATE SODIUM
     Indication: Constipation
     Route: 054
  6. CALCIUM [Concomitant]
     Active Substance: CALCIUM
     Indication: Product used for unknown indication
     Route: 048
  7. DENOSUMAB [Concomitant]
     Active Substance: DENOSUMAB
     Indication: Product used for unknown indication
  8. GABAPENTIN [Concomitant]
     Active Substance: GABAPENTIN
     Indication: Product used for unknown indication
     Dosage: 400 MG BY MOUTH TWO TIMES PER DAY.
     Route: 048
  9. MIDODRINE [Concomitant]
     Active Substance: MIDODRINE
     Indication: Product used for unknown indication
     Route: 048
  10. MIRABEGRON [Concomitant]
     Active Substance: MIRABEGRON
     Indication: Product used for unknown indication
     Route: 048
  11. MOMETASONE [Concomitant]
     Active Substance: MOMETASONE
     Indication: Product used for unknown indication
  12. POLYETHYLENE GLYCOL [Concomitant]
     Active Substance: POLYETHYLENE GLYCOL
     Indication: Product used for unknown indication
     Route: 048
  13. POLYETHYLENE GLYCOL ELECTROLYTES [Concomitant]
     Indication: Product used for unknown indication
     Dosage: POWDER
     Route: 048
  14. SENNOSIDES [Concomitant]
     Active Substance: SENNOSIDES
     Indication: Product used for unknown indication
     Route: 048
  15. QUETIAPINE [Concomitant]
     Active Substance: QUETIAPINE
     Indication: Product used for unknown indication
     Route: 048
  16. VITAMIN B12 [Concomitant]
     Active Substance: CYANOCOBALAMIN
     Indication: Product used for unknown indication
  17. VITAMIN D3 [Concomitant]
     Active Substance: CHOLECALCIFEROL
     Indication: Product used for unknown indication
     Route: 048
  18. ZINC OXIDE [Concomitant]
     Active Substance: ZINC OXIDE
     Indication: Product used for unknown indication
     Dosage: PASTE
  19. CEFAZOLIN [Concomitant]
     Active Substance: CEFAZOLIN
     Indication: Product used for unknown indication
     Route: 042
  20. RIFAMPIN [Concomitant]
     Active Substance: RIFAMPIN
     Indication: Product used for unknown indication
     Route: 048

REACTIONS (33)
  - Pulmonary fibrosis [Not Recovered/Not Resolved]
  - Hip fracture [Unknown]
  - Hysterectomy [Unknown]
  - Incisional hernia [Unknown]
  - Hip arthroplasty [Unknown]
  - Device related sepsis [Unknown]
  - Cholecystectomy [Unknown]
  - Gastrostomy [Unknown]
  - Lens extraction [Unknown]
  - Spinal decompression [Unknown]
  - Hospitalisation [Recovering/Resolving]
  - Loss of personal independence in daily activities [Unknown]
  - Sedation [Unknown]
  - Pain [Recovered/Resolved with Sequelae]
  - Pain [Recovered/Resolved]
  - Blood test abnormal [Unknown]
  - Pleural effusion [Not Recovered/Not Resolved]
  - Lung disorder [Unknown]
  - Mucosal hypertrophy [Unknown]
  - Sinus disorder [Unknown]
  - Urinary tract infection [Unknown]
  - Bacteraemia [Unknown]
  - Gastrointestinal disorder [Unknown]
  - Delirium [Unknown]
  - Atelectasis [Not Recovered/Not Resolved]
  - Pyrexia [Unknown]
  - Malaise [Not Recovered/Not Resolved]
  - Haemoglobin decreased [Unknown]
  - Fall [Unknown]
  - Abdominal distension [Unknown]
  - Pneumonia [Unknown]
  - Dysphagia [Unknown]
  - Device use error [Unknown]

NARRATIVE: CASE EVENT DATE: 20220101
